FAERS Safety Report 20903554 (Version 1)
Quarter: 2022Q2

REPORT INFORMATION
  Report Type: Report from Study
  Country: CA (occurrence: CA)
  Receive Date: 20220602
  Receipt Date: 20220602
  Transmission Date: 20220721
  Serious: Yes (Other)
  Sender: FDA-Public Use
  Company Number: CA-CELGENE-CAN-20211205591

PATIENT
  Age: 79 Year
  Sex: Male

DRUGS (8)
  1. REBLOZYL [Suspect]
     Active Substance: LUSPATERCEPT-AAMT
     Indication: Myelodysplastic syndrome
     Dosage: 1.33 MILLIGRAM/KILOGRAM
     Route: 058
     Dates: start: 20210810
  2. REBLOZYL [Suspect]
     Active Substance: LUSPATERCEPT-AAMT
     Indication: Thalassaemia beta
     Dosage: FREQUENCY TEXT: NOT PROVIDED
     Route: 058
     Dates: start: 20211123
  3. REBLOZYL [Suspect]
     Active Substance: LUSPATERCEPT-AAMT
     Dosage: FREQUENCY TEXT: NOT PROVIDED
     Route: 058
     Dates: start: 20220118
  4. NIFIDINE [Concomitant]
  5. ROSUVASTATIN [Concomitant]
     Active Substance: ROSUVASTATIN
  6. PREDNISONE [Concomitant]
     Active Substance: PREDNISONE
  7. TERAZOSIN [Concomitant]
     Active Substance: TERAZOSIN HYDROCHLORIDE
  8. CLOPIDOGREL [Concomitant]
     Active Substance: CLOPIDOGREL BISULFATE

REACTIONS (6)
  - Haemoglobin decreased [Not Recovered/Not Resolved]
  - Headache [Recovered/Resolved]
  - Asthenia [Recovered/Resolved]
  - Rash macular [Recovered/Resolved]
  - Pain [Recovered/Resolved]
  - Blood pressure systolic increased [Recovered/Resolved with Sequelae]

NARRATIVE: CASE EVENT DATE: 20211110
